FAERS Safety Report 12498338 (Version 2)
Quarter: 2016Q3

REPORT INFORMATION
  Report Type: Spontaneous
  Country: CH (occurrence: CH)
  Receive Date: 20160627
  Receipt Date: 20160705
  Transmission Date: 20161109
  Serious: Yes (Other)
  Sender: FDA-Public Use
  Company Number: CH-BAYER-2016-119336

PATIENT
  Sex: Male

DRUGS (1)
  1. XOFIGO [Suspect]
     Active Substance: RADIUM RA-223 DICHLORIDE
     Indication: PROSTATE CANCER METASTATIC
     Dosage: UNK
     Dates: start: 20160121, end: 20160525

REACTIONS (5)
  - Prostatic specific antigen increased [Unknown]
  - Bone pain [Unknown]
  - Haemoglobin decreased [Unknown]
  - Fatigue [Unknown]
  - Prostate cancer [Unknown]
